FAERS Safety Report 20610333 (Version 2)
Quarter: 2024Q2

REPORT INFORMATION
  Report Type: Spontaneous
  Country: US (occurrence: US)
  Receive Date: 20220318
  Receipt Date: 20240408
  Transmission Date: 20240716
  Serious: No
  Sender: FDA-Public Use
  Company Number: US-UCBSA-2021052246

PATIENT
  Sex: Male

DRUGS (2)
  1. BRIVIACT [Suspect]
     Active Substance: BRIVARACETAM
     Indication: Generalised tonic-clonic seizure
     Dosage: UNK
  2. BRIVIACT [Suspect]
     Active Substance: BRIVARACETAM
     Indication: Off label use

REACTIONS (3)
  - Irritability [Unknown]
  - Insomnia [Unknown]
  - Off label use [Unknown]
